FAERS Safety Report 11185670 (Version 1)
Quarter: 2015Q2

REPORT INFORMATION
  Report Type: Spontaneous
  Country: FR (occurrence: FR)
  Receive Date: 20150612
  Receipt Date: 20150612
  Transmission Date: 20150821
  Serious: Yes (Hospitalization)
  Sender: FDA-Public Use
  Company Number: PHHY2015FR069567

PATIENT
  Age: 37 Year
  Sex: Female

DRUGS (4)
  1. FORMOAIR HFA [Suspect]
     Active Substance: FORMOTEROL FUMARATE
     Indication: DYSPNOEA
     Dosage: 2 DF, QD
     Route: 055
     Dates: start: 20091009, end: 20091014
  2. GAVISCON                           /01405501/ [Suspect]
     Active Substance: SODIUM ALGINATE\SODIUM BICARBONATE
     Indication: PRODUCT USED FOR UNKNOWN INDICATION
     Dosage: UNK
     Route: 048
     Dates: start: 20091001, end: 20091014
  3. CYCLEANE [Suspect]
     Active Substance: DESOGESTREL\ETHINYL ESTRADIOL
     Indication: ORAL CONTRACEPTION
     Dosage: 1 DF, QD
     Route: 048
     Dates: end: 20091014
  4. CELESTENE [Suspect]
     Active Substance: BETAMETHASONE
     Indication: DYSPNOEA
     Dosage: 2 DF, QD
     Route: 065
     Dates: start: 20091009, end: 20091014

REACTIONS (6)
  - Pelvic venous thrombosis [None]
  - Deep vein thrombosis [Recovered/Resolved]
  - Pulmonary infarction [None]
  - Pulmonary embolism [Recovered/Resolved]
  - Insomnia [None]
  - Deep vein thrombosis [None]

NARRATIVE: CASE EVENT DATE: 20091013
